FAERS Safety Report 4499891-8 (Version None)
Quarter: 2004Q4

REPORT INFORMATION
  Report Type: 
  Country: None (occurrence: None)
  Receive Date: 20041108
  Receipt Date: 20041026
  Transmission Date: 20050328
  Serious: Yes (Other)
  Sender: FDA-Public Use
  Company Number: GB-2004-028177

PATIENT
  Sex: Female

DRUGS (2)
  1. FLUDARABINE PHOSPHATE [Suspect]
     Dosage: 3 COURSES
  2. CAMPATH [Suspect]
     Dosage: 3 COURSES

REACTIONS (1)
  - HYPERTHYROIDISM [None]
